FAERS Safety Report 4411335-0 (Version None)
Quarter: 2004Q3

REPORT INFORMATION
  Report Type: 
  Country: None (occurrence: None)
  Receive Date: 20040727
  Receipt Date: 20040715
  Transmission Date: 20050211
  Serious: No
  Sender: FDA-Public Use
  Company Number: 2004CG01418

PATIENT
  Sex: Female

DRUGS (1)
  1. NAROPIN [Suspect]
     Indication: EPIDURAL ANAESTHESIA
     Dates: start: 20030101, end: 20030101

REACTIONS (2)
  - HYPOKINESIA [None]
  - POST PROCEDURAL COMPLICATION [None]
